FAERS Safety Report 10236543 (Version 1)
Quarter: 2014Q2

REPORT INFORMATION
  Report Type: Report from Study
  Country: FR (occurrence: FR)
  Receive Date: 20140613
  Receipt Date: 20140613
  Transmission Date: 20141212
  Serious: Yes (Death)
  Sender: FDA-Public Use
  Company Number: FR-BAXTER-2014BAX031270

PATIENT
  Sex: Female

DRUGS (10)
  1. ENDOXAN 1000 MG, POUDRE POUR SOLUTION INJECTABLE [Suspect]
     Indication: BREAST CANCER
     Route: 042
  2. 5-FLUOROURACIL [Suspect]
     Indication: BREAST CANCER
     Dosage: DAY 1
     Route: 042
  3. EPIRUBICIN [Suspect]
     Indication: BREAST CANCER
     Route: 042
  4. TAXOL [Suspect]
     Indication: BREAST CANCER
     Dosage: ON DAY 22
     Route: 042
  5. DEXAMETHASONE [Suspect]
     Indication: PREMEDICATION
     Dosage: 12 AND 6 HOURS BEFORE TAXOL INFUSIONS
     Route: 048
  6. DEXAMETHASONE [Suspect]
     Indication: BREAST CANCER
  7. DIPHENHYDRAMINE [Suspect]
     Indication: BREAST CANCER
     Dosage: 30 MINUTES BEFORE TAXOL
     Route: 042
  8. DIPHENHYDRAMINE [Suspect]
     Indication: PREMEDICATION
  9. RANITIDINE [Suspect]
     Indication: BREAST CANCER
     Dosage: 30 MINUTES BEFORE TAXOL
     Route: 042
  10. RANITIDINE [Suspect]
     Indication: PREMEDICATION

REACTIONS (1)
  - Breast cancer [Fatal]
